FAERS Safety Report 23868791 (Version 1)
Quarter: 2024Q2

REPORT INFORMATION
  Report Type: Spontaneous
  Country: US (occurrence: None)
  Receive Date: 20240516
  Receipt Date: 20240516
  Transmission Date: 20240716
  Serious: Yes (Disabling, Other)
  Sender: FDA-Public Use
  Company Number: None

PATIENT
  Age: 73 Year
  Sex: Female
  Weight: 74.25 kg

DRUGS (1)
  1. PROLIA [Suspect]
     Active Substance: DENOSUMAB
     Indication: Osteoporosis
     Dates: start: 20230330, end: 20240516

REACTIONS (7)
  - Infusion site swelling [None]
  - Infusion site pruritus [None]
  - Infusion site rash [None]
  - Pain in extremity [None]
  - Arthralgia [None]
  - Back pain [None]
  - Urticaria [None]

NARRATIVE: CASE EVENT DATE: 20240427
